FAERS Safety Report 17223475 (Version 1)
Quarter: 2020Q1

REPORT INFORMATION
  Report Type: Other
  Country: CZ (occurrence: CZ)
  Receive Date: 20200102
  Receipt Date: 20200102
  Transmission Date: 20200409
  Serious: Yes (Other)
  Sender: FDA-Public Use
  Company Number: CZ-HEALTHCARE PHARMACEUTICALS LTD.-2078413

PATIENT
  Age: 36 Year
  Sex: Female

DRUGS (11)
  1. DOXORUBICIN HYDROCHLORIDE. [Suspect]
     Active Substance: DOXORUBICIN HYDROCHLORIDE
     Indication: HODGKIN^S DISEASE NODULAR SCLEROSIS STAGE III
     Route: 065
     Dates: start: 201207
  2. CYTARABINE. [Suspect]
     Active Substance: CYTARABINE
     Route: 065
  3. CYTARABINE. [Suspect]
     Active Substance: CYTARABINE
     Route: 065
  4. ETOPOSIDE. [Suspect]
     Active Substance: ETOPOSIDE
     Route: 065
  5. VINBLASTINE SULFATE. [Suspect]
     Active Substance: VINBLASTINE SULFATE
     Route: 065
     Dates: start: 201207
  6. DEXAMETHASONE. [Suspect]
     Active Substance: DEXAMETHASONE
     Route: 065
  7. CISPLATIN. [Suspect]
     Active Substance: CISPLATIN
     Route: 065
  8. MELPHALAN. [Suspect]
     Active Substance: MELPHALAN
     Route: 065
  9. BLEOMYCIN [Suspect]
     Active Substance: BLEOMYCIN SULFATE
     Route: 065
     Dates: start: 201207
  10. CARMUSTINE. [Suspect]
     Active Substance: CARMUSTINE
     Route: 065
  11. DACARBAZINE. [Suspect]
     Active Substance: DACARBAZINE
     Route: 065
     Dates: start: 201207

REACTIONS (2)
  - Disease progression [Unknown]
  - Hodgkin^s disease nodular sclerosis stage III [Unknown]

NARRATIVE: CASE EVENT DATE: 201312
